FAERS Safety Report 5852947-7 (Version None)
Quarter: 2008Q3

REPORT INFORMATION
  Report Type: 
  Country: None (occurrence: None)
  Receive Date: 20080814
  Receipt Date: 20080702
  Transmission Date: 20090109
  Serious: No
  Sender: FDA-Public Use
  Company Number: WAES 0807USA00644

PATIENT
  Age: 41 Year
  Sex: Male

DRUGS (4)
  1. ISENTRESS [Suspect]
     Indication: HIV INFECTION
     Dosage: 400 MG/BID/PO
     Route: 048
     Dates: start: 20070901
  2. NORVIR [Concomitant]
  3. PREZISTA [Concomitant]
  4. VIREAD [Concomitant]

REACTIONS (2)
  - DYSPEPSIA [None]
  - MEDICATION RESIDUE [None]
